FAERS Safety Report 6115822-9 (Version None)
Quarter: 2009Q1

REPORT INFORMATION
  Report Type: 
  Country: None (occurrence: None)
  Receive Date: 20090311
  Receipt Date: 20090224
  Transmission Date: 20090719
  Serious: Yes (Hospitalization)
  Sender: FDA-Public Use
  Company Number: AE2009-031

PATIENT
  Age: 49 Year
  Sex: Male

DRUGS (4)
  1. FAZACLO ODT [Suspect]
     Indication: SCHIZOPHRENIA, UNDIFFERENTIATED TYPE
     Dosage: 300 MG DAILY, PO
     Route: 048
     Dates: start: 20090115, end: 20090201
  2. DIVALPROEX EXTENDED-RELEASE [Concomitant]
  3. LORAZEPAM [Concomitant]
  4. ZYPREXA ZYDIS [Concomitant]

REACTIONS (4)
  - EXHIBITIONISM [None]
  - LEGAL PROBLEM [None]
  - PSYCHIATRIC DECOMPENSATION [None]
  - TREATMENT NONCOMPLIANCE [None]
